FAERS Safety Report 4876683-9 (Version None)
Quarter: 2006Q1

REPORT INFORMATION
  Report Type: 
  Country: None (occurrence: None)
  Receive Date: 20060110
  Receipt Date: 20050426
  Transmission Date: 20060701
  Serious: Yes (Death, Hospitalization)
  Sender: FDA-Public Use
  Company Number: US-MERCK-0504USA04864

PATIENT
  Age: 75 Year
  Sex: Male
  Weight: 84 kg

DRUGS (2)
  1. VIOXX [Suspect]
     Indication: ARTHRITIS
     Route: 048
     Dates: start: 20010401, end: 20020425
  2. VIOXX [Suspect]
     Route: 048
     Dates: start: 20030109, end: 20040930

REACTIONS (4)
  - ARTHROPATHY [None]
  - DEATH [None]
  - MYOCARDIAL INFARCTION [None]
  - SPINAL DISORDER [None]
